FAERS Safety Report 4421158-4 (Version None)
Quarter: 2004Q3

REPORT INFORMATION
  Report Type: 
  Country: None (occurrence: None)
  Receive Date: 20040804
  Receipt Date: 20040727
  Transmission Date: 20050211
  Serious: Yes (Hospitalization, Other)
  Sender: FDA-Public Use
  Company Number: ITWYE934328JUL04

PATIENT
  Age: 51 Year
  Sex: Female

DRUGS (1)
  1. SIROLIMUS           (SIROLIMUS) [Suspect]

REACTIONS (1)
  - TRANSPLANT REJECTION [None]
